FAERS Safety Report 9287291 (Version 1)
Quarter: 2013Q2

REPORT INFORMATION
  Report Type: Spontaneous
  Country: AT (occurrence: AT)
  Receive Date: 20130513
  Receipt Date: 20130513
  Transmission Date: 20140414
  Serious: Yes (Hospitalization)
  Sender: FDA-Public Use
  Company Number: AT-ABBOTT-13X-009-1087986-00

PATIENT
  Age: 20 Year
  Sex: Female

DRUGS (1)
  1. DEPAKINE [Suspect]
     Indication: DRUG ABUSE
     Dosage: UNKNOWN;TOTAL
     Route: 048
     Dates: start: 20120628, end: 20120628

REACTIONS (5)
  - Drug abuse [Unknown]
  - Ammonia increased [Recovered/Resolved]
  - Hypotension [Recovered/Resolved]
  - Sinus bradycardia [Recovered/Resolved]
  - Somnolence [Recovered/Resolved]
